FAERS Safety Report 5690345-X (Version None)
Quarter: 2008Q1

REPORT INFORMATION
  Report Type: 
  Country: None (occurrence: None)
  Receive Date: 20080331
  Receipt Date: 20080331
  Transmission Date: 20080703
  Serious: Yes (Other)
  Sender: FDA-Public Use
  Company Number: None

PATIENT
  Age: 36 Year
  Sex: Female
  Weight: 66.6788 kg

DRUGS (1)
  1. SINGULAIR [Suspect]
     Indication: MULTIPLE ALLERGIES
     Dosage: 10 MG ONCE A DAY PO; THE LAST TWO YEARS.
     Route: 048

REACTIONS (5)
  - AGITATION [None]
  - BIPOLAR II DISORDER [None]
  - DEPRESSION [None]
  - IRRITABILITY [None]
  - MOOD SWINGS [None]
